FAERS Safety Report 7450666-7 (Version None)
Quarter: 2011Q2

REPORT INFORMATION
  Report Type: 
  Country: None (occurrence: None)
  Receive Date: 20110429
  Receipt Date: 20110429
  Transmission Date: 20111010
  Serious: Yes (Hospitalization, Disabling)
  Sender: FDA-Public Use
  Company Number: None

PATIENT
  Age: 41 Year
  Sex: Female
  Weight: 106.5953 kg

DRUGS (1)
  1. VANCOMYCINE HYDROCHLORIDE [Suspect]
     Indication: STAPHYLOCOCCAL INFECTION
     Dosage: IV
     Route: 042
     Dates: start: 20101001, end: 20101008

REACTIONS (3)
  - RENAL FAILURE CHRONIC [None]
  - LIVER FUNCTION TEST ABNORMAL [None]
  - RENAL FAILURE ACUTE [None]
